FAERS Safety Report 8485082 (Version 2)
Quarter: 2018Q1

REPORT INFORMATION
  Report Type: Report from Study
  Country: KR (occurrence: KR)
  Receive Date: 20120330
  Receipt Date: 20180207
  Transmission Date: 20180509
  Serious: Yes (Hospitalization)
  Sender: FDA-Public Use
  Company Number: KR-UCBSA-018281

PATIENT
  Age: 39 Year
  Sex: Female
  Weight: 52.7 kg

DRUGS (5)
  1. METHYLPREDNISOLONE. [Concomitant]
     Active Substance: METHYLPREDNISOLONE
     Indication: RHEUMATOID ARTHRITIS
     Dosage: 4 MG, 2X/DAY (BID)
     Route: 048
     Dates: start: 20100322, end: 20100903
  2. CALTEO [Concomitant]
     Indication: OSTEOPOROSIS PROPHYLAXIS
     Dosage: 1 TABLET TWICE DAILY
     Route: 048
     Dates: start: 20100222, end: 20100903
  3. CERTOLIZUMAB PEGOL RA [Suspect]
     Active Substance: CERTOLIZUMAB PEGOL
     Indication: RHEUMATOID ARTHRITIS
     Dosage: 3 DOSES
     Route: 058
     Dates: start: 20100520, end: 20100825
  4. FOLIC ACID. [Concomitant]
     Active Substance: FOLIC ACID
     Indication: DRUG TOXICITY PROPHYLAXIS
     Dosage: 1 MG, ONCE DAILY (QD)
     Route: 048
     Dates: start: 20100222, end: 20100903
  5. METHOTREXATE. [Concomitant]
     Active Substance: METHOTREXATE
     Indication: RHEUMATOID ARTHRITIS
     Dosage: 15 MG, WEEKLY (QW)
     Route: 048
     Dates: start: 20100222, end: 20100903

REACTIONS (5)
  - Cerebral vasoconstriction [Recovered/Resolved]
  - Subarachnoid haemorrhage [Recovered/Resolved]
  - Cerebral haemorrhage [Recovered/Resolved]
  - Post procedural complication [Recovered/Resolved]
  - Subdural haematoma [Recovered/Resolved]

NARRATIVE: CASE EVENT DATE: 20100904
